FAERS Safety Report 20520861 (Version 1)
Quarter: 2022Q1

REPORT INFORMATION
  Report Type: Spontaneous
  Country: US (occurrence: US)
  Receive Date: 20220225
  Receipt Date: 20220225
  Transmission Date: 20220423
  Serious: Yes (Other)
  Sender: FDA-Public Use
  Company Number: US-BIOGEN-2022BI01099499

PATIENT
  Sex: Female

DRUGS (1)
  1. TYSABRI [Suspect]
     Active Substance: NATALIZUMAB
     Indication: Multiple sclerosis
     Route: 065
     Dates: start: 20200909, end: 20201105

REACTIONS (9)
  - Scoliosis [Unknown]
  - Multiple sclerosis [Not Recovered/Not Resolved]
  - Device related infection [Unknown]
  - Impaired gastric emptying [Not Recovered/Not Resolved]
  - Muscular weakness [Unknown]
  - Neck pain [Not Recovered/Not Resolved]
  - Drug ineffective [Unknown]
  - Muscle spasms [Not Recovered/Not Resolved]
  - Arthralgia [Not Recovered/Not Resolved]
